FAERS Safety Report 4309657-7 (Version None)
Quarter: 2004Q1

REPORT INFORMATION
  Report Type: 
  Country: None (occurrence: None)
  Receive Date: 20040301
  Receipt Date: 20040218
  Transmission Date: 20041129
  Serious: Yes (Hospitalization)
  Sender: FDA-Public Use
  Company Number: 2004197795DE

PATIENT
  Age: 73 Year
  Sex: Female
  Weight: 102 kg

DRUGS (2)
  1. EPIRUBICIN [Suspect]
     Indication: BREAST CANCER
     Dosage: 178 MG, IV
     Route: 042
     Dates: start: 20040119, end: 20040119
  2. CYCLOPHOSPHAMIDE [Concomitant]

REACTIONS (6)
  - BLISTER [None]
  - CATHETER RELATED COMPLICATION [None]
  - DRUG TOXICITY [None]
  - ERYTHEMA [None]
  - MASTITIS [None]
  - POST PROCEDURAL COMPLICATION [None]
